FAERS Safety Report 24607582 (Version 1)
Quarter: 2024Q4

REPORT INFORMATION
  Report Type: Spontaneous
  Country: US (occurrence: None)
  Receive Date: 20241111
  Receipt Date: 20241111
  Transmission Date: 20250115
  Serious: No
  Sender: Public
  Company Number: None

PATIENT
  Age: 78 Year
  Sex: Female
  Weight: 58.9 kg

DRUGS (1)
  1. BRUKINSA [Suspect]
     Active Substance: ZANUBRUTINIB
     Indication: Waldenstrom^s macroglobulinaemia
     Dosage: 320 MG DAILY ORAL
     Route: 048
     Dates: start: 20240529, end: 20241105

REACTIONS (5)
  - Myalgia [None]
  - Neuropathy peripheral [None]
  - Temperature intolerance [None]
  - Fatigue [None]
  - Contusion [None]

NARRATIVE: CASE EVENT DATE: 20241024
